FAERS Safety Report 6163773-6 (Version None)
Quarter: 2009Q2

REPORT INFORMATION
  Report Type: 
  Country: None (occurrence: None)
  Receive Date: 20090422
  Receipt Date: 20090410
  Transmission Date: 20091009
  Serious: Yes (Hospitalization)
  Sender: FDA-Public Use
  Company Number: JP-JNJFOC-20090301747

PATIENT
  Sex: Male
  Weight: 56 kg

DRUGS (1)
  1. TRAMADOL HYDROCHLORIDE AND ACETAMINOPHEN [Suspect]
     Indication: PAIN
     Dosage: DOSE FREQUENCY: 3-8
     Route: 048
     Dates: start: 20080909, end: 20090306

REACTIONS (1)
  - BLADDER TAMPONADE [None]
